FAERS Safety Report 6386015-5 (Version None)
Quarter: 2009Q4

REPORT INFORMATION
  Report Type: 
  Country: None (occurrence: None)
  Receive Date: 20091002
  Receipt Date: 20081024
  Transmission Date: 20100525
  Serious: No
  Sender: FDA-Public Use
  Company Number: US-ASTRAZENECA-2008UW23960

PATIENT
  Age: 67 Year
  Sex: Female

DRUGS (6)
  1. ARIMIDEX [Suspect]
     Route: 048
     Dates: start: 20060101
  2. DILANTIN [Concomitant]
  3. LISINOPRIL [Concomitant]
     Route: 048
  4. HYDROCODONE [Concomitant]
     Dosage: 5/500 ONE AS NEEDED
  5. BACLOFEN [Concomitant]
  6. DETROL LA [Concomitant]

REACTIONS (8)
  - ABDOMINAL PAIN [None]
  - DIARRHOEA [None]
  - INSOMNIA [None]
  - IRRITABLE BOWEL SYNDROME [None]
  - MUSCLE SPASMS [None]
  - RENAL PAIN [None]
  - STRESS URINARY INCONTINENCE [None]
  - URINARY TRACT INFECTION [None]
